FAERS Safety Report 5333124-5 (Version None)
Quarter: 2007Q2

REPORT INFORMATION
  Report Type: 
  Country: None (occurrence: None)
  Receive Date: 20070521
  Receipt Date: 20070521
  Transmission Date: 20071010
  Serious: Yes (Hospitalization, Other)
  Sender: FDA-Public Use
  Company Number: None

PATIENT
  Age: 14 Year
  Sex: Female
  Weight: 47.6277 kg

DRUGS (1)
  1. CITALOPRAM HYDROBROMIDE [Suspect]
     Indication: DEPRESSION
     Dosage: 10MG ONCE DAILY PO
     Route: 048
     Dates: start: 20070414, end: 20070425

REACTIONS (4)
  - CONVULSION [None]
  - FATIGUE [None]
  - GAIT DISTURBANCE [None]
  - MENTAL STATUS CHANGES [None]
